FAERS Safety Report 25628353 (Version 1)
Quarter: 2025Q3

REPORT INFORMATION
  Report Type: Spontaneous
  Country: US (occurrence: US)
  Receive Date: 20250731
  Receipt Date: 20250731
  Transmission Date: 20251021
  Serious: Yes (Hospitalization, Other)
  Sender: INCYTE
  Company Number: US-INCYTE CORPORATION-2025IN008310

PATIENT
  Age: 79 Year

DRUGS (1)
  1. JAKAFI [Suspect]
     Active Substance: RUXOLITINIB
     Dosage: 15 MILLIGRAM, BID

REACTIONS (4)
  - Full blood count decreased [Unknown]
  - Weight decreased [Unknown]
  - Arthritis bacterial [Unknown]
  - Haemoglobin decreased [Unknown]
